FAERS Safety Report 9447621 (Version 3)
Quarter: 2013Q3

REPORT INFORMATION
  Report Type: Spontaneous
  Country: SG (occurrence: SG)
  Receive Date: 20130808
  Receipt Date: 20130830
  Transmission Date: 20140515
  Serious: Yes (Other)
  Sender: FDA-Public Use
  Company Number: SG-009507513-1308SGP001348

PATIENT
  Sex: Male
  Weight: 70 kg

DRUGS (6)
  1. VICTRELIS 200MG MERCK [Suspect]
     Indication: CHRONIC HEPATITIS C
     Dosage: 800 MG, TDS, DAILY
     Route: 048
     Dates: start: 201304, end: 201307
  2. VICTRELIS 200MG MERCK [Suspect]
     Indication: FIBROSIS
  3. PEG-INTRON [Suspect]
     Indication: CHRONIC HEPATITIS C
     Dosage: 100 MCG, INJECTION
     Dates: start: 201304, end: 201307
  4. PEG-INTRON [Suspect]
     Indication: FIBROSIS
  5. REBETOL [Suspect]
     Indication: CHRONIC HEPATITIS C
     Dosage: 1000 MCG
     Route: 048
     Dates: start: 201304, end: 201307
  6. REBETOL [Suspect]
     Indication: FIBROSIS

REACTIONS (7)
  - Hepatic cirrhosis [Not Recovered/Not Resolved]
  - Rash [Not Recovered/Not Resolved]
  - Onychomalacia [Not Recovered/Not Resolved]
  - Headache [Not Recovered/Not Resolved]
  - Alopecia [Not Recovered/Not Resolved]
  - Decreased appetite [Not Recovered/Not Resolved]
  - Weight decreased [Not Recovered/Not Resolved]
